FAERS Safety Report 20950080 (Version 1)
Quarter: 2022Q2

REPORT INFORMATION
  Report Type: Spontaneous
  Country: AU (occurrence: AU)
  Receive Date: 20220613
  Receipt Date: 20220613
  Transmission Date: 20220721
  Serious: Yes (Death, Hospitalization, Other)
  Sender: FDA-Public Use
  Company Number: AU-LUPIN PHARMACEUTICALS INC.-2022-08355

PATIENT
  Age: 76 Year
  Sex: Female

DRUGS (3)
  1. TEMAZEPAM [Suspect]
     Active Substance: TEMAZEPAM
     Indication: Abdominal pain
     Dosage: 20 MILLIGRAM
     Route: 065
  2. MORPHINE [Suspect]
     Active Substance: MORPHINE
     Indication: Abdominal pain
     Dosage: UNK UNK, SINGLE ( 2.5-10 MG ONCE ONLY)(4 ? 2.5 MG IV)
     Route: 042
  3. MEPERIDINE [Suspect]
     Active Substance: MEPERIDINE
     Indication: Abdominal pain
     Dosage: 100 MILLIGRAM, SINGLE
     Route: 030

REACTIONS (2)
  - Respiratory depression [Fatal]
  - Toxicity to various agents [Fatal]
